FAERS Safety Report 20159116 (Version 1)
Quarter: 2021Q4

REPORT INFORMATION
  Report Type: Spontaneous
  Country: US (occurrence: US)
  Receive Date: 20211208
  Receipt Date: 20211208
  Transmission Date: 20220303
  Serious: No
  Sender: FDA-Public Use
  Company Number: US-AMERICAN REGENT INC-2021002281

PATIENT
  Age: 56 Year
  Sex: Female
  Weight: 91.2 kg

DRUGS (24)
  1. VENOFER [Suspect]
     Active Substance: IRON SUCROSE
     Indication: Iron deficiency anaemia
     Dosage: 200 MILLIGRAM IN 0.9% SODIUM CHLORIDE
     Dates: start: 20180119, end: 20180119
  2. VENOFER [Suspect]
     Active Substance: IRON SUCROSE
     Dosage: 200 MILLIGRAM IN 0.9% SODIUM CHLORIDE
     Dates: start: 20180122, end: 20180122
  3. VENOFER [Suspect]
     Active Substance: IRON SUCROSE
     Dosage: 200 MILLIGRAM IN 0.9% SODIUM CHLORIDE
     Dates: start: 20180125, end: 20180125
  4. TYLENOL                            /00020001/ [Concomitant]
     Indication: Premedication
     Dosage: 650 MILLIGRAM, TAKE TWO TABS
     Route: 048
     Dates: start: 20180119, end: 20180119
  5. TYLENOL                            /00020001/ [Concomitant]
     Dosage: 650 MILLIGRAM, TAKE TWO TABS
     Route: 048
     Dates: start: 20180122, end: 20180122
  6. TYLENOL                            /00020001/ [Concomitant]
     Dosage: 650 MILLIGRAM
     Route: 048
     Dates: start: 20180125, end: 20180125
  7. BENADRYL                           /00000402/ [Concomitant]
     Indication: Premedication
     Dosage: 50 MILLIGRAM
     Dates: start: 20180119, end: 20180119
  8. BENADRYL                           /00000402/ [Concomitant]
     Dosage: 50 MILLIGRAM
     Dates: start: 20180122, end: 20180122
  9. BENADRYL                           /00000402/ [Concomitant]
     Dosage: 50 MILLIGRAM
     Dates: start: 20180125, end: 20180125
  10. VITAMIN B12                        /00056201/ [Concomitant]
     Indication: Vitamin B12 deficiency
     Dosage: 1000 MICROGRAM WEEKLY X4 THEN MONTHLY
     Route: 058
     Dates: start: 20180119, end: 20180119
  11. SEROQUEL [Concomitant]
     Active Substance: QUETIAPINE FUMARATE
     Indication: Product used for unknown indication
     Dosage: 400 MILLIGRAM, QD
     Route: 048
  12. CELEXA                             /00582602/ [Concomitant]
     Indication: Product used for unknown indication
     Dosage: 40 MILLIGRAM, QD
     Route: 048
  13. BENTYL [Concomitant]
     Active Substance: DICYCLOMINE HYDROCHLORIDE
     Indication: Product used for unknown indication
     Dosage: 20 MILLIGRAM SIX TIMES DAILY
     Route: 048
  14. TOPAMAX [Concomitant]
     Active Substance: TOPIRAMATE
     Indication: Product used for unknown indication
     Dosage: 100 MILLIGRAM, TID
     Route: 048
  15. SYNTHROID [Concomitant]
     Active Substance: LEVOTHYROXINE SODIUM
     Indication: Product used for unknown indication
     Dosage: 75 MICROGRAM, QD
     Route: 048
  16. LISINOPRIL [Concomitant]
     Active Substance: LISINOPRIL
     Indication: Product used for unknown indication
     Dosage: 10 MILLIGRAM, QD
     Route: 048
  17. BACLOFEN [Concomitant]
     Active Substance: BACLOFEN
     Indication: Product used for unknown indication
     Dosage: 10 MILLIGRAM, TID
     Route: 048
  18. XANAX [Concomitant]
     Active Substance: ALPRAZOLAM
     Indication: Product used for unknown indication
     Dosage: 0.25 MILLIGRAM, PRN AS NEEDED FOR SLEEP
     Route: 048
  19. DOXEPIN [Concomitant]
     Active Substance: DOXEPIN
     Indication: Product used for unknown indication
     Dosage: 25 MILLIGRAM, QD
     Route: 048
  20. DOXEPIN [Concomitant]
     Active Substance: DOXEPIN
     Dosage: 25 MILLIGRAM, BID
     Route: 048
  21. ZOFRAN                             /00955301/ [Concomitant]
     Indication: Nausea
     Dosage: 8 MILLIGRAM, PRN EVERY 8 HOURS
     Route: 048
  22. ACETAMINOPHEN\BUTALBITAL\CAFFEINE [Concomitant]
     Active Substance: ACETAMINOPHEN\BUTALBITAL\CAFFEINE
     Indication: Product used for unknown indication
     Dosage: 50-300-40 MG PRN
     Route: 048
  23. METHYLPREDNISOLONE [Concomitant]
     Active Substance: METHYLPREDNISOLONE
     Indication: Migraine
     Dosage: 4 MILLIGRAM, PRN
     Route: 048
  24. FERROUS SULFATE [Concomitant]
     Active Substance: FERROUS SULFATE
     Indication: Product used for unknown indication
     Dosage: 325 MILLIGRAM (65 MG IRON), BID
     Route: 048

REACTIONS (4)
  - Respiratory disorder [Recovered/Resolved]
  - Anxiety [Unknown]
  - Nausea [Recovered/Resolved]
  - Headache [Recovered/Resolved]

NARRATIVE: CASE EVENT DATE: 20210119
